FAERS Safety Report 8490938-0 (Version None)
Quarter: 2012Q2

REPORT INFORMATION
  Report Type: 
  Country: None (occurrence: None)
  Receive Date: 20120629
  Receipt Date: 20120629
  Transmission Date: 20120825
  Serious: Yes (Other)
  Sender: FDA-Public Use
  Company Number: None

PATIENT
  Sex: Female

DRUGS (1)
  1. HYDROCHLOROTHIAZIDE 25MG TAB [Suspect]
     Indication: HYPERTENSION
     Dosage: 12.5 MG ONCE A DAY PO ONE TIME
     Route: 048
     Dates: start: 20120627

REACTIONS (3)
  - DYSPNOEA [None]
  - SWELLING FACE [None]
  - HEADACHE [None]
